FAERS Safety Report 14338881 (Version 3)
Quarter: 2018Q1

REPORT INFORMATION
  Report Type: Spontaneous
  Country: ES (occurrence: ES)
  Receive Date: 20171229
  Receipt Date: 20180322
  Transmission Date: 20180509
  Serious: Yes (Hospitalization, Other)
  Sender: FDA-Public Use
  Company Number: ES-BAUSCH-BL-2017-035137

PATIENT
  Age: 32 Year
  Sex: Female
  Weight: 100 kg

DRUGS (12)
  1. PENTASA [Suspect]
     Active Substance: MESALAMINE
     Indication: COLITIS ULCERATIVE
     Route: 048
     Dates: start: 200710, end: 201006
  2. IMUREL [Suspect]
     Active Substance: AZATHIOPRINE SODIUM
     Dosage: AT LUNCH
     Route: 065
     Dates: start: 201006
  3. IMUREL [Suspect]
     Active Substance: AZATHIOPRINE SODIUM
     Indication: COLITIS ULCERATIVE
     Dosage: AT BREAKFAST
     Route: 065
     Dates: start: 200903
  4. PENTASA [Suspect]
     Active Substance: MESALAMINE
     Route: 065
     Dates: start: 200909
  5. IMUREL [Suspect]
     Active Substance: AZATHIOPRINE SODIUM
     Route: 065
  6. PENTASA [Suspect]
     Active Substance: MESALAMINE
     Route: 054
     Dates: end: 200909
  7. PENTASA [Suspect]
     Active Substance: MESALAMINE
     Indication: COLITIS ULCERATIVE
     Route: 054
  8. PENTASA [Suspect]
     Active Substance: MESALAMINE
     Route: 048
  9. ALANERV [Concomitant]
     Active Substance: DIETARY SUPPLEMENT
     Indication: PRODUCT USED FOR UNKNOWN INDICATION
  10. CLIPPER [Suspect]
     Active Substance: BECLOMETHASONE DIPROPIONATE
     Indication: COLITIS ULCERATIVE
     Route: 065
     Dates: start: 200812
  11. SALOFALK [Suspect]
     Active Substance: MESALAMINE
     Indication: COLITIS ULCERATIVE
     Route: 065
     Dates: start: 201006
  12. LYRICA [Suspect]
     Active Substance: PREGABALIN
     Indication: BACK PAIN
     Route: 065
     Dates: start: 200903

REACTIONS (10)
  - Dizziness [Unknown]
  - Nausea [Unknown]
  - Thrombocytopenic purpura [Unknown]
  - Malaise [Recovered/Resolved]
  - Fatigue [Unknown]
  - Colitis ulcerative [Unknown]
  - Weight increased [Unknown]
  - Haemolytic uraemic syndrome [Unknown]
  - Hypertension [Unknown]
  - Condition aggravated [Unknown]

NARRATIVE: CASE EVENT DATE: 200903
